FAERS Safety Report 9527937 (Version 1)
Quarter: 2013Q1

REPORT INFORMATION
  Report Type: Spontaneous
  Country: US (occurrence: None)
  Receive Date: 20130313
  Receipt Date: 20130313
  Transmission Date: 20140127
  Serious: No
  Sender: FDA-Public Use
  Company Number: 1000027344

PATIENT
  Age: 47 Year
  Sex: Male

DRUGS (9)
  1. SAVELLA [Suspect]
     Indication: FIBROMYALGIA
     Route: 048
     Dates: start: 201110, end: 201110
  2. SAVELLA [Suspect]
     Indication: FIBROMYALGIA
     Dosage: 50 MG, (25 MG, 2 IN 1 D), ORAL
     Route: 048
     Dates: start: 201110, end: 2011
  3. METFORMIN (METFORMIN) (METFORMIN) [Concomitant]
  4. GLIPIZIDE (GLIPIZIDE) (GLIPIZDE) [Concomitant]
  5. TRICOR (FENOFIBRATE) (FENOFIBRATE) [Concomitant]
  6. PROTONIX (PANTOPRAZOLE SODIUM SESQUIHYDRATE) (PANTOPRAZOLE SODIUM SESQUIHYDRATE0 [Concomitant]
  7. AMBIEN (ZOLPIDEM TARTRATE) (ZOLPIDEM TARTRATE) [Concomitant]
  8. LORAZEPAM (LORAZEPAM) (LORAZEPAM) [Concomitant]
  9. TRAZODONE (TRAZODONE) (TRAZODONE) [Concomitant]

REACTIONS (4)
  - Peripheral coldness [None]
  - Feeling cold [None]
  - Dysuria [None]
  - Urinary incontinence [None]
